FAERS Safety Report 7930989-5 (Version None)
Quarter: 2011Q4

REPORT INFORMATION
  Report Type: 
  Country: None (occurrence: None)
  Receive Date: 20111118
  Receipt Date: 20111118
  Transmission Date: 20120403
  Serious: Yes (Hospitalization)
  Sender: FDA-Public Use
  Company Number: None

PATIENT
  Sex: Male

DRUGS (1)
  1. INFUMORPH [Suspect]
     Dosage: 25MG/ML X 40 ML UD INTRATRACHEAL PUMP
     Route: 039
     Dates: start: 20110919

REACTIONS (2)
  - WITHDRAWAL SYNDROME [None]
  - DEVICE INFUSION ISSUE [None]
